FAERS Safety Report 8060319-2 (Version None)
Quarter: 2012Q1

REPORT INFORMATION
  Report Type: 
  Country: None (occurrence: None)
  Receive Date: 20120119
  Receipt Date: 20120119
  Transmission Date: 20120608
  Serious: Yes (Hospitalization)
  Sender: FDA-Public Use
  Company Number: None

PATIENT
  Age: 80 Year
  Sex: Female
  Weight: 68.2 kg

DRUGS (16)
  1. COREG [Concomitant]
  2. LISINOPRIL [Concomitant]
  3. ASPIRIN [Suspect]
     Dosage: 325MG PO DAILY  CHRONIC
     Route: 048
  4. CARDIZEM CD [Concomitant]
  5. GAS-X [Concomitant]
  6. MIRALEX [Concomitant]
  7. EVISTA [Concomitant]
  8. LOVENOX [Suspect]
     Indication: ATRIAL FIBRILLATION
     Dosage: 80MG BID IM  RECENT
     Route: 030
  9. VIT C [Concomitant]
  10. COLACE [Concomitant]
  11. SPIRONOLACTONE [Concomitant]
  12. COUMADIN [Suspect]
     Indication: ATRIAL FIBRILLATION
     Dosage: 2.5 MG DAILY PO  RECENT
     Route: 048
  13. BUMEX [Concomitant]
  14. LOVASTATIN [Concomitant]
  15. DIGOXIN [Concomitant]
  16. TRAMADOL HCL [Concomitant]

REACTIONS (3)
  - GASTROINTESTINAL HAEMORRHAGE [None]
  - GASTRITIS EROSIVE [None]
  - IRON DEFICIENCY ANAEMIA [None]
